FAERS Safety Report 7311362-X (Version None)
Quarter: 2011Q1

REPORT INFORMATION
  Report Type: 
  Country: None (occurrence: None)
  Receive Date: 20110224
  Receipt Date: 20110215
  Transmission Date: 20110831
  Serious: Yes (Hospitalization)
  Sender: FDA-Public Use
  Company Number: US-JNJFOC-20110205470

PATIENT
  Sex: Female
  Weight: 65.4 kg

DRUGS (8)
  1. RIBOFLAVIN TAB [Concomitant]
  2. TYLENOL [Concomitant]
  3. IMITREX [Concomitant]
  4. TOPAMAX [Concomitant]
  5. REMICADE [Suspect]
     Indication: INFLAMMATORY BOWEL DISEASE
     Route: 042
  6. FIORICET [Concomitant]
  7. ALBUTEROL [Concomitant]
  8. REGLAN [Concomitant]

REACTIONS (1)
  - MIGRAINE [None]
